FAERS Safety Report 18441733 (Version 2)
Quarter: 2020Q4

REPORT INFORMATION
  Report Type: Spontaneous
  Country: US (occurrence: US)
  Receive Date: 20201029
  Receipt Date: 20201130
  Transmission Date: 20210114
  Serious: No
  Sender: FDA-Public Use
  Company Number: US-B.I. PHARMACEUTICALS,INC./RIDGEFIELD-2020-BI-057533

PATIENT
  Age: 75 Year

DRUGS (2)
  1. COMBIVENT [Suspect]
     Active Substance: ALBUTEROL SULFATE\IPRATROPIUM BROMIDE
  2. COMBIVENT [Suspect]
     Active Substance: ALBUTEROL SULFATE\IPRATROPIUM BROMIDE
     Indication: ASTHMA
     Dosage: 4 ACTUATIONS DAILY
     Route: 065
     Dates: start: 2013

REACTIONS (5)
  - Off label use [Unknown]
  - Nervousness [Unknown]
  - Oral pain [Unknown]
  - Product complaint [Unknown]
  - Oral discomfort [Unknown]

NARRATIVE: CASE EVENT DATE: 2013
